FAERS Safety Report 19285581 (Version 6)
Quarter: 2021Q3

REPORT INFORMATION
  Report Type: Report from Study
  Country: JP (occurrence: JP)
  Receive Date: 20210521
  Receipt Date: 20210831
  Transmission Date: 20211014
  Serious: Yes (Hospitalization)
  Sender: FDA-Public Use
  Company Number: NVSC2021JP113123

PATIENT
  Age: 72 Year
  Sex: Male

DRUGS (16)
  1. LOXOPROFEN SODIUM [Concomitant]
     Active Substance: LOXOPROFEN SODIUM
     Indication: SPONDYLOLISTHESIS
     Dosage: UNK
     Route: 065
     Dates: start: 20050101
  2. BEOVU [Suspect]
     Active Substance: BROLUCIZUMAB-DBLL
     Indication: RETINAL VEIN OCCLUSION
     Dosage: 6 MG
     Route: 031
     Dates: start: 20200303, end: 20210518
  3. DIQUAS [Concomitant]
     Active Substance: DIQUAFOSOL TETRASODIUM
     Indication: FOREIGN BODY SENSATION IN EYES
     Dosage: UNK
     Route: 047
     Dates: start: 20201111
  4. BIMATOPROST. [Concomitant]
     Active Substance: BIMATOPROST
     Indication: GLAUCOMA
     Dosage: UNK
     Route: 047
     Dates: start: 20201111
  5. REBAMIPIDE [Concomitant]
     Active Substance: REBAMIPIDE
     Indication: PROPHYLAXIS
     Dosage: UNK
     Route: 065
     Dates: start: 20210301
  6. PREDNISOLONE. [Concomitant]
     Active Substance: PREDNISOLONE
     Indication: RETINAL VASCULAR OCCLUSION
     Dosage: UNK
     Route: 065
     Dates: start: 20210519, end: 20210629
  7. TRIAMCINOLONE ACETONIDE. [Concomitant]
     Active Substance: TRIAMCINOLONE ACETONIDE
     Indication: RETINAL VASCULAR OCCLUSION
     Dosage: UNK
     Route: 065
     Dates: start: 20210518, end: 20210518
  8. CARBAZOCHROME SODIUM SULFONATE [Concomitant]
     Active Substance: CARBAZOCHROME SODIUM SULFONATE
     Indication: RETINAL VEIN OCCLUSION
     Dosage: 30 MG
     Route: 065
     Dates: start: 20200205
  9. SEIROGAN [Concomitant]
     Indication: PROPHYLAXIS AGAINST DIARRHOEA
     Dosage: UNK
     Route: 065
     Dates: start: 19900101
  10. MOHRUS PAP XR [Concomitant]
     Active Substance: KETOPROFEN
     Indication: SPONDYLOLISTHESIS
     Dosage: UNK
     Route: 065
     Dates: start: 20050101
  11. KALLIDINOGENASE [Concomitant]
     Active Substance: KALLIDINOGENASE
     Indication: RETINAL VEIN OCCLUSION
     Dosage: 50 UNITS
     Route: 065
     Dates: start: 20200205
  12. ALPHAGAN P [Concomitant]
     Active Substance: BRIMONIDINE TARTRATE
     Indication: GLAUCOMA
     Dosage: UNK
     Route: 047
     Dates: start: 20201111
  13. CELECOXIB. [Concomitant]
     Active Substance: CELECOXIB
     Indication: ARTHRALGIA
     Dosage: UNK
     Route: 065
     Dates: start: 20210301
  14. BETAMETHASONE SODIUM PHOSPHATE [Concomitant]
     Active Substance: BETAMETHASONE SODIUM PHOSPHATE
     Indication: RETINAL VASCULAR OCCLUSION
     Dosage: UNK
     Route: 047
     Dates: start: 20210518, end: 20210629
  15. FLUMETHOLON [Concomitant]
     Active Substance: FLUOROMETHOLONE
     Indication: PROPHYLAXIS
     Dosage: UNK
     Route: 047
     Dates: start: 20210518, end: 20210629
  16. OPALMON [Concomitant]
     Active Substance: LIMAPROST
     Indication: SPONDYLOLISTHESIS
     Dosage: UNK
     Route: 065
     Dates: start: 20050101

REACTIONS (1)
  - Vitritis [Not Recovered/Not Resolved]

NARRATIVE: CASE EVENT DATE: 20210518
